FAERS Safety Report 18559791 (Version 5)
Quarter: 2025Q1

REPORT INFORMATION
  Report Type: Report from Study
  Country: CA (occurrence: CA)
  Receive Date: 20201130
  Receipt Date: 20250212
  Transmission Date: 20250409
  Serious: Yes (Hospitalization, Other)
  Sender: TAKEDA
  Company Number: CA-TAKEDA-2020TUS053077

PATIENT
  Age: 35 Year
  Sex: Female

DRUGS (19)
  1. VEDOLIZUMAB [Suspect]
     Active Substance: VEDOLIZUMAB
     Indication: Crohn^s disease
  2. VEDOLIZUMAB [Suspect]
     Active Substance: VEDOLIZUMAB
  3. VEDOLIZUMAB [Suspect]
     Active Substance: VEDOLIZUMAB
     Dosage: 300 MILLIGRAM, Q4WEEKS
     Dates: start: 20180913
  4. VEDOLIZUMAB [Suspect]
     Active Substance: VEDOLIZUMAB
     Dosage: 300 MILLIGRAM, Q4WEEKS
  5. VEDOLIZUMAB [Suspect]
     Active Substance: VEDOLIZUMAB
     Dosage: 300 MILLIGRAM, Q4WEEKS
  6. VEDOLIZUMAB [Suspect]
     Active Substance: VEDOLIZUMAB
     Dosage: 300 MILLIGRAM, Q4WEEKS
  7. VEDOLIZUMAB [Suspect]
     Active Substance: VEDOLIZUMAB
     Dosage: 300 MILLIGRAM, Q4WEEKS
  8. VITAMIN D [Concomitant]
     Active Substance: VITAMIN D NOS
  9. CALCIUM [Concomitant]
     Active Substance: CALCIUM
  10. CELEBREX [Concomitant]
     Active Substance: CELECOXIB
     Dosage: 200 MILLIGRAM, BID
  11. EFFEXOR [Concomitant]
     Active Substance: VENLAFAXINE HYDROCHLORIDE
  12. TYLENOL [Concomitant]
     Active Substance: ACETAMINOPHEN
  13. LINACLOTIDE [Concomitant]
     Active Substance: LINACLOTIDE
     Dosage: 290 MILLIGRAM, QD
  14. ORPHENADRINE [Concomitant]
     Active Substance: ORPHENADRINE
     Dosage: 100 MILLIGRAM, BID
  15. DIPHENHYDRAMINE [Concomitant]
     Active Substance: DIPHENHYDRAMINE
     Indication: Premedication
  16. ACETAMINOPHEN [Concomitant]
     Active Substance: ACETAMINOPHEN
     Indication: Premedication
  17. METHYLPREDNISOLONE [Concomitant]
     Active Substance: METHYLPREDNISOLONE
     Indication: Premedication
  18. WELLBUTRIN [Concomitant]
     Active Substance: BUPROPION HYDROCHLORIDE
  19. TALTZ [Concomitant]
     Active Substance: IXEKIZUMAB
     Dosage: 80 MILLIGRAM, Q2WEEKS

REACTIONS (9)
  - Colonic abscess [Unknown]
  - Abdominal pain [Not Recovered/Not Resolved]
  - Synovitis [Unknown]
  - Poor venous access [Unknown]
  - Infusion site extravasation [Unknown]
  - Off label use [Unknown]
  - Product dose omission issue [Unknown]
  - Chills [Unknown]
  - Fatigue [Unknown]

NARRATIVE: CASE EVENT DATE: 20180913
